FAERS Safety Report 8080816-3 (Version None)
Quarter: 2012Q1

REPORT INFORMATION
  Report Type: 
  Country: None (occurrence: None)
  Receive Date: 20120130
  Receipt Date: 20120125
  Transmission Date: 20120608
  Serious: Yes (Death, Hospitalization)
  Sender: FDA-Public Use
  Company Number: AU-BRISTOL-MYERS SQUIBB COMPANY-16336133

PATIENT
  Sex: Male
  Weight: 180 kg

DRUGS (1)
  1. YERVOY [Suspect]
     Indication: MALIGNANT MELANOMA
     Dosage: PT RECIVES 540MG OF IPILI. NO OF INFU:02
     Dates: start: 20120106

REACTIONS (3)
  - HALLUCINATION [None]
  - DYSPNOEA [None]
  - NEOPLASM MALIGNANT [None]
